FAERS Safety Report 8862739 (Version 1)
Quarter: 2012Q4

REPORT INFORMATION
  Report Type: 
  Country: US (occurrence: US)
  Receive Date: 20121026
  Receipt Date: 20121026
  Transmission Date: 20130627
  Serious: No
  Sender: FDA-Public Use
  Company Number: US-ALLERGAN-1213402US

PATIENT
  Age: 43 Year
  Sex: Female

DRUGS (6)
  1. ALPHAGAN P [Suspect]
     Indication: OPEN ANGLE GLAUCOMA
     Dosage: 1 Gtt, bid
     Route: 047
     Dates: start: 20120917
  2. SYNTHROID [Concomitant]
     Indication: THYROID DISORDER NOS
  3. NEXIUM                             /01479302/ [Concomitant]
     Indication: DRUG USE FOR UNKNOWN INDICATION
  4. LAMISIL TABLETS [Concomitant]
     Indication: DRUG USE FOR UNKNOWN INDICATION
     Dosage: UNK
     Dates: start: 20120904
  5. CARAFATE [Concomitant]
     Indication: DRUG USE FOR UNKNOWN INDICATION
     Dosage: UNK
     Dates: start: 20120904
  6. SYSTANE [Concomitant]
     Indication: DRUG USE FOR UNKNOWN INDICATION
     Dosage: UNK UNK, prn

REACTIONS (3)
  - Productive cough [Unknown]
  - Palpitations [Unknown]
  - Sneezing [Unknown]
